FAERS Safety Report 5004962-3 (Version None)
Quarter: 2006Q1

REPORT INFORMATION
  Report Type: 
  Country: None (occurrence: None)
  Receive Date: 20060321
  Receipt Date: 20051214
  Transmission Date: 20060701
  Serious: No
  Sender: FDA-Public Use
  Company Number: YPA20050566

PATIENT
  Sex: Male

DRUGS (4)
  1. VESICARE [Suspect]
     Dosage: ORAL
     Route: 048
  2. PLAVIX [Concomitant]
  3. ASPIRIN [Concomitant]
  4. ANTIHYPERTENSIVE PILL [Concomitant]

REACTIONS (2)
  - EPISTAXIS [None]
  - HAEMATURIA [None]
